FAERS Safety Report 6531332-9 (Version None)
Quarter: 2010Q1

REPORT INFORMATION
  Report Type: 
  Country: None (occurrence: None)
  Receive Date: 20100108
  Receipt Date: 20091006
  Transmission Date: 20100710
  Serious: No
  Sender: FDA-Public Use
  Company Number: A0804877A

PATIENT
  Age: 58 Year
  Sex: Female
  Weight: 82.3 kg

DRUGS (2)
  1. TYKERB [Suspect]
     Dosage: 5TAB PER DAY
     Dates: start: 20090801
  2. XELODA [Suspect]
     Dates: start: 20090801

REACTIONS (4)
  - BALANCE DISORDER [None]
  - COUGH [None]
  - FALL [None]
  - VOMITING [None]
